FAERS Safety Report 23867502 (Version 1)
Quarter: 2024Q2

REPORT INFORMATION
  Report Type: Spontaneous
  Country: US (occurrence: US)
  Receive Date: 20240517
  Receipt Date: 20240517
  Transmission Date: 20240716
  Serious: No
  Sender: FDA-Public Use
  Company Number: US-PFIZER INC-202400106692

PATIENT
  Age: 50 Year
  Sex: Female
  Weight: 85.28 kg

DRUGS (2)
  1. LEVOXYL [Suspect]
     Active Substance: LEVOTHYROXINE SODIUM
     Indication: Hypothyroidism
     Dosage: 88 UG, 1X/DAY
     Route: 048
  2. CORN [Suspect]
     Active Substance: CORN
     Dosage: UNK

REACTIONS (1)
  - Allergic reaction to excipient [Not Recovered/Not Resolved]
